FAERS Safety Report 5672626-9 (Version None)
Quarter: 2008Q1

REPORT INFORMATION
  Report Type: 
  Country: None (occurrence: None)
  Receive Date: 20080319
  Receipt Date: 20080313
  Transmission Date: 20080703
  Serious: Yes (Hospitalization)
  Sender: FDA-Public Use
  Company Number: US-MERCK-0803USA02256

PATIENT
  Age: 70 Year
  Sex: Male

DRUGS (19)
  1. SINGULAIR [Suspect]
     Indication: ASTHMA
     Route: 048
     Dates: start: 20070101
  2. SINGULAIR [Suspect]
     Indication: BRONCHITIS CHRONIC
     Route: 048
     Dates: start: 20070101
  3. [THERAPY UNSPECIFIED] [Concomitant]
     Route: 065
  4. IRON (UNSPECIFIED) [Concomitant]
     Route: 065
  5. KLOR-CON [Concomitant]
     Route: 065
  6. FLOMAX [Concomitant]
     Route: 065
  7. METANX [Concomitant]
     Route: 065
  8. FUROSEMIDE [Concomitant]
     Route: 065
  9. COLACE [Concomitant]
     Route: 065
  10. ASPIRIN [Concomitant]
     Route: 065
  11. VITAMINS (UNSPECIFIED) [Concomitant]
     Route: 065
  12. PROTONIX [Concomitant]
     Route: 065
  13. SIMVASTATIN [Concomitant]
     Route: 065
  14. CYCLOBENZAPRINE HYDROCHLORIDE [Concomitant]
     Route: 065
  15. ADVAIR DISKUS 100/50 [Concomitant]
     Route: 065
  16. LANTAC [Concomitant]
     Route: 065
  17. SENOKOT [Concomitant]
     Route: 065
  18. LORATADINE [Concomitant]
     Route: 065
  19. CORDARONE [Concomitant]
     Route: 065

REACTIONS (3)
  - CHEST PAIN [None]
  - HEART RATE IRREGULAR [None]
  - PNEUMONIA [None]
